FAERS Safety Report 24093836 (Version 1)
Quarter: 2024Q3

REPORT INFORMATION
  Report Type: Spontaneous
  Country: US (occurrence: US)
  Receive Date: 20240716
  Receipt Date: 20240716
  Transmission Date: 20241017
  Serious: No
  Sender: SAGENT
  Company Number: US-SAGENT PHARMACEUTICALS-2023SAG000175

PATIENT

DRUGS (18)
  1. HEPARIN SODIUM [Suspect]
     Active Substance: HEPARIN SODIUM
     Indication: Coronary artery disease
     Dosage: 12000 INTERNATIONAL UNIT AT 10:51
     Route: 042
  2. HEPARIN SODIUM [Suspect]
     Active Substance: HEPARIN SODIUM
     Dosage: 3000 INTERNATIONAL UNIT AT 11:01
     Route: 042
  3. HEPARIN SODIUM [Suspect]
     Active Substance: HEPARIN SODIUM
     Dosage: 10000 INTERNATIONAL UNIT AT 11:33
     Route: 042
  4. HEPARIN SODIUM [Suspect]
     Active Substance: HEPARIN SODIUM
     Dosage: 5000 INTERNATIONAL UNIT AT 11:52
     Route: 042
  5. VERSED [Concomitant]
     Active Substance: MIDAZOLAM HYDROCHLORIDE
     Indication: Coronary artery disease
     Dosage: 2 MILLIGRAM AT 10.30 AM
     Route: 042
  6. LIDOCAINE [Concomitant]
     Active Substance: LIDOCAINE
     Indication: Coronary artery disease
     Dosage: UNK AT 10:38 AM
     Route: 058
  7. NICARDIPINE [Concomitant]
     Active Substance: NICARDIPINE
     Indication: Coronary artery disease
     Dosage: 200 MICROGRAM AT 11.25 AM
     Route: 016
  8. CLOPIDOGREL [Concomitant]
     Active Substance: CLOPIDOGREL BISULFATE
     Indication: Coronary artery disease
     Dosage: 900 MILLIGRAM AT 11.36 AM
     Route: 048
  9. LOPRESSOR [Concomitant]
     Active Substance: METOPROLOL TARTRATE
     Indication: Coronary artery disease
     Dosage: 5 MILLIGRAM AT 11.52 AM
     Route: 042
  10. INTEGRILIN [Concomitant]
     Active Substance: EPTIFIBATIDE
     Indication: Coronary artery disease
     Dosage: UNK, GTT POST-CASE
     Route: 042
  11. ASORIAN [Concomitant]
     Indication: Product used for unknown indication
     Dosage: 82 MILLIGRAM, QD
     Route: 048
  12. SIMVASTATIN [Concomitant]
     Active Substance: SIMVASTATIN
     Indication: Product used for unknown indication
     Dosage: 20 MILLIGRAM, QHS
     Route: 048
  13. MELOXICAM [Concomitant]
     Active Substance: MELOXICAM
     Indication: Product used for unknown indication
     Dosage: 15 MILLIGRAM, QD
     Route: 048
  14. VITAMIN D3 [Concomitant]
     Active Substance: CHOLECALCIFEROL
     Indication: Product used for unknown indication
     Dosage: 1000 INTERNATIONAL UNIT, QD
  15. GLUCOSAMIN + CHONDROITIN [Concomitant]
     Indication: Product used for unknown indication
     Dosage: 600 MILLIGRAM, QD
     Route: 048
  16. LEVOTHYROXINE [Concomitant]
     Active Substance: LEVOTHYROXINE\LEVOTHYROXINE SODIUM
     Indication: Product used for unknown indication
     Dosage: 50 MICROGRAM, QD
  17. METFORMIN [Concomitant]
     Active Substance: METFORMIN HYDROCHLORIDE
     Indication: Product used for unknown indication
     Dosage: 2000 MILLIGRAM, QD
     Route: 048
  18. TOPROL XL [Concomitant]
     Active Substance: METOPROLOL SUCCINATE
     Indication: Product used for unknown indication
     Dosage: 50 MILLIGRAM, QD
     Route: 048

REACTIONS (1)
  - Therapeutic product effect decreased [Recovered/Resolved]
